FAERS Safety Report 9985922 (Version 2)
Quarter: 2014Q1

REPORT INFORMATION
  Report Type: Spontaneous
  Country: JP (occurrence: JP)
  Receive Date: 20140307
  Receipt Date: 20140307
  Transmission Date: 20141002
  Serious: Yes (Other)
  Sender: FDA-Public Use
  Company Number: JP-SUCAMPO PHARMA AMERICAS, INC-SPI201300920

PATIENT
  Age: 4 Decade
  Sex: Female

DRUGS (2)
  1. AMITIZA [Suspect]
     Indication: CONSTIPATION
     Dosage: 24 MG, QD
     Route: 048
     Dates: start: 201212
  2. AMITIZA [Suspect]
     Dosage: 24 MCG, PRN
     Dates: start: 201311, end: 201312

REACTIONS (2)
  - Volvulus [Recovered/Resolved]
  - Nausea [Recovered/Resolved]
